FAERS Safety Report 8786511 (Version 2)
Quarter: 2012Q4

REPORT INFORMATION
  Report Type: 
  Country: US (occurrence: US)
  Receive Date: 20120914
  Receipt Date: 20120926
  Transmission Date: 20130627
  Serious: Yes (Death)
  Sender: FDA-Public Use
  Company Number: US-CELGENEUS-163-21880-12062506

PATIENT
  Age: 91 None
  Sex: Female

DRUGS (2)
  1. REVLIMID [Suspect]
     Indication: LYMPHOMA NOS
     Dosage: 25 Milligram
     Route: 048
     Dates: start: 20111028
  2. REVLIMID [Suspect]
     Dosage: 15 Milligram
     Route: 048
     Dates: start: 201206

REACTIONS (3)
  - Death [Fatal]
  - Diarrhoea [Unknown]
  - Dyspnoea [Unknown]
